FAERS Safety Report 8881851 (Version 1)
Quarter: 2012Q4

REPORT INFORMATION
  Report Type: 
  Country: GB (occurrence: GB)
  Receive Date: 20121102
  Receipt Date: 20121102
  Transmission Date: 20130627
  Serious: Yes (Hospitalization)
  Sender: FDA-Public Use
  Company Number: GB-PFIZER INC-2012270832

PATIENT
  Age: 43 Year
  Sex: Female

DRUGS (2)
  1. ALPRAZOLAM [Suspect]
     Dosage: 15 mg, UNK
  2. METHADONE [Suspect]
     Dosage: 180 mg,UNK

REACTIONS (6)
  - Overdose [Unknown]
  - Loss of consciousness [Recovered/Resolved]
  - Pneumonia aspiration [Unknown]
  - Renal tubular necrosis [Unknown]
  - Hepatic failure [Unknown]
  - Leukoencephalopathy [Recovered/Resolved]
